FAERS Safety Report 5038730-3 (Version None)
Quarter: 2006Q2

REPORT INFORMATION
  Report Type: 
  Country: None (occurrence: None)
  Receive Date: 20060627
  Receipt Date: 20060627
  Transmission Date: 20061013
  Serious: Yes (Other)
  Sender: FDA-Public Use
  Company Number: None

PATIENT
  Age: 67 Year
  Sex: Female
  Weight: 79.3795 kg

DRUGS (1)
  1. NEULASTIN 6MG AMGEN USA [Suspect]
     Indication: MYELOPROLIFERATIVE DISORDER
     Dosage: 6MG ONCE A MONTH SQ
     Route: 058
     Dates: start: 20060608, end: 20060608

REACTIONS (3)
  - ARTHRALGIA [None]
  - BONE PAIN [None]
  - RASH [None]
